FAERS Safety Report 7870694-7 (Version None)
Quarter: 2011Q3

REPORT INFORMATION
  Report Type: 
  Country: None (occurrence: None)
  Receive Date: 20110922
  Receipt Date: 20110606
  Transmission Date: 20111222
  Serious: Yes (Hospitalization)
  Sender: FDA-Public Use
  Company Number: AUR-APL-2011-02815

PATIENT
  Age: 15 Year
  Sex: Male

DRUGS (6)
  1. SEVOFLURANE [Suspect]
     Indication: GENERAL ANAESTHESIA
     Dosage: INHALATION
     Route: 055
  2. ACTEYLCHOLINESTERASE INHIBITORS [Suspect]
     Indication: PRODUCT USED FOR UNKNOWN INDICATION
  3. CHOLINERGIC RECEPTOR AGONISTS [Suspect]
     Indication: PRODUCT USED FOR UNKNOWN INDICATION
  4. PANCURONIUM BROMIDE [Suspect]
     Indication: PRODUCT USED FOR UNKNOWN INDICATION
  5. ONDANSETRON [Suspect]
     Indication: PRODUCT USED FOR UNKNOWN INDICATION
  6. ISOFLURANE [Suspect]
     Indication: GENERAL ANAESTHESIA
     Dosage: INHALATION
     Route: 055

REACTIONS (1)
  - TACHYCARDIA [None]
